FAERS Safety Report 20734260 (Version 4)
Quarter: 2025Q2

REPORT INFORMATION
  Report Type: Spontaneous
  Country: SE (occurrence: SE)
  Receive Date: 20220421
  Receipt Date: 20250610
  Transmission Date: 20250717
  Serious: Yes (Death, Hospitalization, Other)
  Sender: MYLAN
  Company Number: SE-SAMSUNG BIOEPIS-SB-2022-06309

PATIENT
  Age: 75 Year
  Sex: Female

DRUGS (16)
  1. METHOTREXATE [Suspect]
     Active Substance: METHOTREXATE
     Indication: Neurosarcoidosis
     Route: 065
  2. METHOTREXATE [Suspect]
     Active Substance: METHOTREXATE
  3. METHOTREXATE [Suspect]
     Active Substance: METHOTREXATE
  4. METHOTREXATE [Suspect]
     Active Substance: METHOTREXATE
     Route: 065
  5. METHOTREXATE [Suspect]
     Active Substance: METHOTREXATE
     Route: 065
  6. METHOTREXATE [Suspect]
     Active Substance: METHOTREXATE
  7. METHOTREXATE [Suspect]
     Active Substance: METHOTREXATE
  8. METHOTREXATE [Suspect]
     Active Substance: METHOTREXATE
     Route: 065
  9. REMICADE [Suspect]
     Active Substance: INFLIXIMAB
     Indication: Neurosarcoidosis
     Route: 065
  10. REMICADE [Suspect]
     Active Substance: INFLIXIMAB
  11. REMICADE [Suspect]
     Active Substance: INFLIXIMAB
  12. REMICADE [Suspect]
     Active Substance: INFLIXIMAB
     Route: 065
  13. REMICADE [Suspect]
     Active Substance: INFLIXIMAB
     Route: 042
  14. REMICADE [Suspect]
     Active Substance: INFLIXIMAB
  15. REMICADE [Suspect]
     Active Substance: INFLIXIMAB
  16. REMICADE [Suspect]
     Active Substance: INFLIXIMAB
     Route: 042

REACTIONS (8)
  - Pneumonia bacterial [Fatal]
  - COVID-19 [Fatal]
  - Hodgkin^s disease [Fatal]
  - Neurosarcoidosis [Fatal]
  - Epstein-Barr virus associated lymphoproliferative disorder [Recovered/Resolved]
  - Off label use [Unknown]
  - Lymphoproliferative disorder [Recovered/Resolved]
  - Product use in unapproved indication [Unknown]
